FAERS Safety Report 5797835-X (Version None)
Quarter: 2008Q3

REPORT INFORMATION
  Report Type: 
  Country: None (occurrence: None)
  Receive Date: 20080702
  Receipt Date: 20080624
  Transmission Date: 20090109
  Serious: Yes (Hospitalization)
  Sender: FDA-Public Use
  Company Number: BR-JNJFOC-20080606316

PATIENT
  Age: 35 Year
  Sex: Male
  Weight: 91 kg

DRUGS (5)
  1. TYLENOL (CAPLET) [Suspect]
  2. TYLENOL (CAPLET) [Suspect]
     Indication: PAIN
  3. PREXIGE [Concomitant]
     Indication: INFLAMMATION
  4. MINERAL OIL [Concomitant]
  5. DIPYRONE [Concomitant]
     Indication: PAIN

REACTIONS (1)
  - ANAPHYLACTIC SHOCK [None]
